FAERS Safety Report 24652633 (Version 1)
Quarter: 2024Q4

REPORT INFORMATION
  Report Type: Spontaneous
  Country: US (occurrence: None)
  Receive Date: 20241122
  Receipt Date: 20241122
  Transmission Date: 20250115
  Serious: Yes (Other)
  Sender: Public
  Company Number: None

PATIENT
  Sex: Female

DRUGS (3)
  1. ENVARSUS XR [Suspect]
     Active Substance: TACROLIMUS
     Indication: Heart transplant
     Dosage: FREQ: TAKE 1 TABLET (1 MG TOTAL) BY MOUTH DAILY?
     Route: 048
     Dates: start: 20191119
  2. Coreg TAB 12.5MG [Concomitant]
  3. JANUVIA TAB 50MG [Concomitant]

REACTIONS (1)
  - Chest pain [None]
